FAERS Safety Report 17468904 (Version 2)
Quarter: 2022Q1

REPORT INFORMATION
  Report Type: Report from Study
  Country: US (occurrence: US)
  Receive Date: 20200227
  Receipt Date: 20220301
  Transmission Date: 20220423
  Serious: No
  Sender: FDA-Public Use
  Company Number: US-AEGERION PHARMACEUTICAL, INC-AEGR004338

PATIENT
  Age: 70 Year
  Sex: Female
  Weight: 68.934 kg

DRUGS (60)
  1. METRELEPTIN [Suspect]
     Active Substance: METRELEPTIN
     Indication: Lipodystrophy acquired
     Dosage: 5 MG, QD
     Route: 058
     Dates: start: 20170327
  2. AMITRIPTYLINE [Concomitant]
     Active Substance: AMITRIPTYLINE
     Indication: Anxiety
     Dosage: 25 MG, PRN
     Route: 048
     Dates: start: 20170109
  3. AMLODIPINE [Concomitant]
     Active Substance: AMLODIPINE BESYLATE
     Indication: Hypertension
     Dosage: 5 MG, QD
     Route: 048
     Dates: start: 20161212
  4. ASPIRIN                            /00002701/ [Concomitant]
     Indication: Cardiovascular event prophylaxis
     Dosage: 81 MG, QD
     Route: 048
  5. CALCIUM [Concomitant]
     Active Substance: CALCIUM
     Indication: Supplementation therapy
     Dosage: 600 MG, QD
     Route: 048
     Dates: start: 20110624
  6. CETIRIZINE [Concomitant]
     Active Substance: CETIRIZINE HYDROCHLORIDE
     Indication: Seasonal allergy
     Dosage: 10 MG, QD
     Route: 048
     Dates: start: 20160708, end: 20180315
  7. VITAMIN D                          /00107901/ [Concomitant]
     Indication: Supplementation therapy
     Dosage: 1 TABLET, QW
     Route: 048
     Dates: start: 20160627
  8. NORCO [Concomitant]
     Active Substance: ACETAMINOPHEN\HYDROCODONE BITARTRATE
     Indication: Fibromyalgia
     Dosage: 1 TABLET, PRN
     Route: 048
     Dates: start: 20160218, end: 20180531
  9. NORCO [Concomitant]
     Active Substance: ACETAMINOPHEN\HYDROCODONE BITARTRATE
     Dosage: 1 TABLET, PRN
     Route: 048
     Dates: start: 20180621, end: 20180805
  10. NORCO [Concomitant]
     Active Substance: ACETAMINOPHEN\HYDROCODONE BITARTRATE
     Dosage: 1 TABLET, PRN
     Route: 048
     Dates: start: 20180813
  11. ICOSAPENT ETHYL [Concomitant]
     Active Substance: ICOSAPENT ETHYL
     Indication: Hyperlipidaemia
     Dosage: 4 G, QD
     Route: 048
     Dates: start: 20160125, end: 20180812
  12. NOVOLOG [Concomitant]
     Active Substance: INSULIN ASPART
     Indication: Type 2 diabetes mellitus
     Dosage: 10 UNITS, TID
     Route: 058
     Dates: start: 20160617, end: 20170813
  13. NOVOLOG [Concomitant]
     Active Substance: INSULIN ASPART
     Dosage: 15 UNITS, TID
     Route: 058
     Dates: start: 20170814
  14. LEVEMIR [Concomitant]
     Active Substance: INSULIN DETEMIR
     Indication: Type 2 diabetes mellitus
     Dosage: 25 UNITS, QD
     Route: 058
     Dates: start: 20170109
  15. JANUVIA [Concomitant]
     Active Substance: SITAGLIPTIN PHOSPHATE
     Indication: Type 2 diabetes mellitus
     Dosage: 100 MG, QD
     Route: 048
     Dates: start: 20160615
  16. LEVALBUTEROL                       /01419301/ [Concomitant]
     Indication: Asthma
     Dosage: 2 PUFF, PRN
     Route: 055
     Dates: start: 20161115
  17. LEVALBUTEROL                       /01419301/ [Concomitant]
     Dosage: 1.25 MG, TID
     Route: 055
     Dates: start: 20161115
  18. LEVOTHYROXINE [Concomitant]
     Active Substance: LEVOTHYROXINE
     Indication: Hypothyroidism
     Dosage: 88 UG, QD
     Route: 048
     Dates: start: 20160421, end: 20180426
  19. LISINOPRIL [Concomitant]
     Active Substance: LISINOPRIL
     Indication: Hypertension
     Dosage: 40 MG, QD
     Route: 048
     Dates: start: 20160125
  20. MAGNESIUM OXIDE [Concomitant]
     Active Substance: MAGNESIUM OXIDE
     Indication: Supplementation therapy
     Dosage: 250 MG, QD
     Route: 048
  21. MECLIZINE                          /00072801/ [Concomitant]
     Indication: Vertigo
     Dosage: 25 MG, PRN
     Route: 048
     Dates: start: 20160626
  22. MELATONIN [Concomitant]
     Active Substance: MELATONIN
     Indication: Supplementation therapy
     Dosage: 1 TABLET, PRN
     Route: 048
     Dates: start: 20161011
  23. METOPROLOL SUCCINATE [Concomitant]
     Active Substance: METOPROLOL SUCCINATE
     Indication: Hypertension
     Dosage: 50 MG, BID
     Route: 048
     Dates: start: 20151110
  24. PAROXETINE [Concomitant]
     Active Substance: PAROXETINE
     Indication: Anxiety
     Dosage: 20 MG, QD
     Route: 048
     Dates: start: 20170210
  25. ROSUVASTATIN [Concomitant]
     Active Substance: ROSUVASTATIN
     Indication: Type IIa hyperlipidaemia
     Dosage: 5 MG, QD
     Route: 048
     Dates: start: 20110622, end: 20180812
  26. DOCUSATE SODIUM\SENNOSIDES A AND B [Concomitant]
     Active Substance: DOCUSATE SODIUM\SENNOSIDES A AND B
     Indication: Constipation
     Dosage: 1 TABLET, PRN
     Route: 048
     Dates: start: 20160218
  27. MYSOLINE [Concomitant]
     Active Substance: PRIMIDONE
     Indication: Essential tremor
     Dosage: 50 MG, QD
     Route: 048
     Dates: start: 20180503, end: 20180620
  28. MYSOLINE [Concomitant]
     Active Substance: PRIMIDONE
     Dosage: 250 MG, QD
     Route: 048
     Dates: start: 20180621
  29. COENZYME Q10 [Concomitant]
     Active Substance: DIETARY SUPPLEMENT\UBIDECARENONE
     Indication: Supplementation therapy
     Dosage: 100 MG, QD
     Route: 048
     Dates: start: 20180213
  30. LANSOPRAZOLE [Concomitant]
     Active Substance: LANSOPRAZOLE
     Indication: Gastrooesophageal reflux disease
     Dosage: 30 MG, QD
     Route: 048
     Dates: start: 20170925
  31. TRAMADOL [Concomitant]
     Active Substance: TRAMADOL
     Indication: Arthralgia
     Dosage: 50 MG, PRN
     Route: 048
     Dates: start: 20180806, end: 20180812
  32. TRAMADOL [Concomitant]
     Active Substance: TRAMADOL
     Indication: Condition aggravated
  33. VALTREX [Concomitant]
     Active Substance: VALACYCLOVIR HYDROCHLORIDE
     Indication: Herpes simplex
     Dosage: 500 MG, PRN
     Route: 048
     Dates: start: 20180525
  34. PROTONIX                           /00661201/ [Concomitant]
     Indication: Gastrooesophageal reflux disease
     Dosage: 40 MG, QD
     Route: 048
     Dates: start: 20151110, end: 20170924
  35. BACLOFEN [Concomitant]
     Active Substance: BACLOFEN
     Indication: Fibromyalgia
     Dosage: 20 MG, TID
     Route: 048
     Dates: start: 20170830, end: 20171026
  36. GABAPENTIN [Concomitant]
     Active Substance: GABAPENTIN
     Indication: Fibromyalgia
     Dosage: 200 MG, BID
     Route: 048
     Dates: start: 20170608, end: 20170830
  37. GABAPENTIN [Concomitant]
     Active Substance: GABAPENTIN
     Dosage: 100 MG, BID
     Route: 048
     Dates: start: 20180126, end: 20180315
  38. GABAPENTIN [Concomitant]
     Active Substance: GABAPENTIN
     Dosage: 300 MG, TID
     Route: 048
     Dates: start: 20180621, end: 20181205
  39. EZETIMIBE [Concomitant]
     Active Substance: EZETIMIBE
     Indication: Hyperlipidaemia
     Dosage: 5 MG, QD
     Route: 048
     Dates: start: 20180213, end: 20180813
  40. AMOXICILLIN [Concomitant]
     Active Substance: AMOXICILLIN
     Indication: Sinusitis
     Dosage: 875 MG, BID
     Route: 048
     Dates: start: 20180226, end: 20180304
  41. PREDNISONE [Concomitant]
     Active Substance: PREDNISONE
     Indication: Sinusitis
     Dosage: 20 MG, BID
     Route: 048
     Dates: start: 20180302, end: 20180307
  42. SYNTHROID [Concomitant]
     Active Substance: LEVOTHYROXINE SODIUM
     Indication: Hypothyroidism
     Dosage: 100 UG, QD
     Route: 048
     Dates: start: 20180427
  43. PROPRANOLOL [Concomitant]
     Active Substance: PROPRANOLOL HYDROCHLORIDE
     Indication: Essential tremor
     Dosage: 20 MG, BID
     Route: 048
     Dates: start: 20180413, end: 20180503
  44. DULCOLAX (BISACODYL) [Concomitant]
     Active Substance: BISACODYL
     Indication: Constipation
     Dosage: 5 MG, QD
     Route: 048
     Dates: start: 20180503
  45. ACETAMINOPHEN\OXYCODONE HYDROCHLORIDE\OXYCODONE TEREPHTHALATE [Concomitant]
     Active Substance: ACETAMINOPHEN\OXYCODONE HYDROCHLORIDE\OXYCODONE TEREPHTHALATE
     Indication: Arthralgia
     Dosage: 1 TABLET, PRN
     Route: 048
     Dates: start: 20180531, end: 20180620
  46. ACETAMINOPHEN\OXYCODONE HYDROCHLORIDE\OXYCODONE TEREPHTHALATE [Concomitant]
     Active Substance: ACETAMINOPHEN\OXYCODONE HYDROCHLORIDE\OXYCODONE TEREPHTHALATE
     Indication: Condition aggravated
  47. CRESTOR [Concomitant]
     Active Substance: ROSUVASTATIN CALCIUM
     Indication: Type IIa hyperlipidaemia
     Dosage: 40 MG, QD
     Route: 048
     Dates: start: 20180813
  48. VASCEPA [Concomitant]
     Active Substance: ICOSAPENT ETHYL
     Indication: Hyperlipidaemia
     Dosage: 2 G, QD
     Route: 048
     Dates: start: 20180813
  49. LYRICA [Concomitant]
     Active Substance: PREGABALIN
     Indication: Arthralgia
     Dosage: 150 MG, BID
     Route: 048
     Dates: start: 20180910, end: 20181218
  50. LYRICA [Concomitant]
     Active Substance: PREGABALIN
     Indication: Condition aggravated
     Dosage: 50 MG, TID
     Route: 048
     Dates: start: 20181219
  51. LYRICA [Concomitant]
     Active Substance: PREGABALIN
     Indication: Fibromyalgia
  52. BUPIVACAINE [Concomitant]
     Active Substance: BUPIVACAINE
     Indication: Arthralgia
     Dosage: 4 ML, ONCE
     Route: 014
     Dates: start: 20180905, end: 20180905
  53. BUPIVACAINE [Concomitant]
     Active Substance: BUPIVACAINE
     Indication: Condition aggravated
  54. METHYLPREDNISOLONE ACETATE [Concomitant]
     Active Substance: METHYLPREDNISOLONE ACETATE
     Indication: Arthralgia
     Dosage: 40 MG, ONCE
     Route: 014
     Dates: start: 20180905, end: 20180905
  55. METHYLPREDNISOLONE ACETATE [Concomitant]
     Active Substance: METHYLPREDNISOLONE ACETATE
     Indication: Condition aggravated
  56. BUSPIRONE [Concomitant]
     Active Substance: BUSPIRONE HYDROCHLORIDE
     Indication: Anxiety
     Dosage: 10 MG, TID
     Route: 048
     Dates: start: 20181019
  57. KENALOG                            /00031902/ [Concomitant]
     Indication: Arthralgia
     Dosage: 40 MG, 1X
     Route: 014
     Dates: start: 20181029, end: 20181029
  58. KENALOG                            /00031902/ [Concomitant]
     Indication: Condition aggravated
  59. FLUTICASONE [Concomitant]
     Active Substance: FLUTICASONE
     Indication: Seasonal allergy
     Dosage: 2 PUFF, PRN
     Route: 055
     Dates: start: 20190108
  60. ALLEGRA [Concomitant]
     Active Substance: FEXOFENADINE HYDROCHLORIDE
     Indication: Seasonal allergy
     Dosage: 180 MG, PRN
     Route: 048
     Dates: start: 20180316

REACTIONS (2)
  - Sinusitis [Recovered/Resolved]
  - Paranasal sinus discomfort [Recovered/Resolved]

NARRATIVE: CASE EVENT DATE: 20180226
